FAERS Safety Report 5887734-7 (Version None)
Quarter: 2008Q3

REPORT INFORMATION
  Report Type: 
  Country: None (occurrence: None)
  Receive Date: 20080918
  Receipt Date: 20080910
  Transmission Date: 20090109
  Serious: Yes (Hospitalization)
  Sender: FDA-Public Use
  Company Number: JP-AVENTIS-200711500JP

PATIENT
  Age: 77 Year
  Sex: Female
  Weight: 42 kg

DRUGS (4)
  1. TAXOTERE [Suspect]
     Route: 041
     Dates: start: 20060405, end: 20070522
  2. TAXOTERE [Suspect]
     Route: 041
     Dates: start: 20070612, end: 20070918
  3. LENDORMIN [Concomitant]
     Indication: INSOMNIA
     Route: 048
     Dates: start: 20060410
  4. NASEA [Concomitant]
     Indication: VOMITING
     Route: 051
     Dates: start: 20060405, end: 20070918

REACTIONS (7)
  - ABDOMINAL WALL ABSCESS [None]
  - ALOPECIA [None]
  - ANOREXIA [None]
  - FRACTURE [None]
  - MALAISE [None]
  - PLATELET COUNT DECREASED [None]
  - WHITE BLOOD CELL COUNT DECREASED [None]
